FAERS Safety Report 7780207-6 (Version None)
Quarter: 2011Q3

REPORT INFORMATION
  Report Type: 
  Country: None (occurrence: None)
  Receive Date: 20110927
  Receipt Date: 20110927
  Transmission Date: 20111222
  Serious: Yes (Other)
  Sender: FDA-Public Use
  Company Number: None

PATIENT
  Age: 67 Year
  Weight: 54.431 kg

DRUGS (1)
  1. LEVOFLOXACIN [Suspect]
     Indication: LOBAR PNEUMONIA
     Dosage: 750 MG
     Route: 041
     Dates: start: 20110726, end: 20110801

REACTIONS (11)
  - MUSCLE ATROPHY [None]
  - DECREASED APPETITE [None]
  - PLEURAL EFFUSION [None]
  - CONDITION AGGRAVATED [None]
  - PAIN [None]
  - NEUROPATHY PERIPHERAL [None]
  - INSOMNIA [None]
  - FALL [None]
  - PULMONARY OEDEMA [None]
  - GAIT DISTURBANCE [None]
  - ANAEMIA [None]
